FAERS Safety Report 26209141 (Version 1)
Quarter: 2025Q4

REPORT INFORMATION
  Report Type: Spontaneous
  Country: US (occurrence: US)
  Receive Date: 20251229
  Receipt Date: 20251229
  Transmission Date: 20260118
  Serious: Yes (Hospitalization, Other)
  Sender: CIPLA
  Company Number: US-CIPLA LTD.-2025US16467

PATIENT

DRUGS (2)
  1. BUPROPION HYDROCHLORIDE SR [Interacting]
     Active Substance: BUPROPION HYDROCHLORIDE
     Indication: Product used for unknown indication
     Dosage: UNK, SINGLE (30-300 MG)
     Route: 048
  2. FENTANYL [Interacting]
     Active Substance: FENTANYL
     Indication: Sedation
     Dosage: UNK
     Route: 065

REACTIONS (3)
  - Intestinal pseudo-obstruction [Recovered/Resolved]
  - Overdose [Unknown]
  - Drug interaction [Unknown]
